FAERS Safety Report 6678064-4 (Version None)
Quarter: 2010Q2

REPORT INFORMATION
  Report Type: 
  Country: None (occurrence: None)
  Receive Date: 20100412
  Receipt Date: 20100401
  Transmission Date: 20101027
  Serious: Yes (Hospitalization, Other)
  Sender: FDA-Public Use
  Company Number: PHHY2010JP18327

PATIENT
  Age: 58 Year
  Sex: Female

DRUGS (6)
  1. CYCLOSPORINE [Suspect]
     Indication: APLASTIC ANAEMIA
  2. ANTITHYMOCYTE IMMUNOGLOBULIN [Concomitant]
     Indication: APLASTIC ANAEMIA
     Dosage: UNK
  3. CIPROFLOXACIN HYDROCHLORIDE [Concomitant]
     Indication: ANTIBIOTIC PROPHYLAXIS
  4. FLUCONAZOLE [Concomitant]
     Indication: ANTIFUNGAL PROPHYLAXIS
  5. ACYCLOVIR SODIUM [Concomitant]
     Indication: ANTIVIRAL PROPHYLAXIS
  6. GRANULOCYTE COLONY STIMULATING FACTOR [Concomitant]

REACTIONS (12)
  - ABDOMINAL PAIN [None]
  - BACILLUS INFECTION [None]
  - BACK PAIN [None]
  - BRAIN ABSCESS [None]
  - CONVULSION [None]
  - GASTRITIS ATROPHIC [None]
  - LYMPHADENOPATHY [None]
  - OEDEMA MUCOSAL [None]
  - PURPURA [None]
  - PYREXIA [None]
  - RED BLOOD CELL COUNT DECREASED [None]
  - WHITE BLOOD CELL COUNT DECREASED [None]
